FAERS Safety Report 12554699 (Version 2)
Quarter: 2016Q3

REPORT INFORMATION
  Report Type: Report from Study
  Country: BR (occurrence: BR)
  Receive Date: 20160713
  Receipt Date: 20160722
  Transmission Date: 20161109
  Serious: Yes (Hospitalization)
  Sender: FDA-Public Use
  Company Number: PHHY2016BR093128

PATIENT
  Sex: Male
  Weight: 96 kg

DRUGS (3)
  1. FORASEQ [Suspect]
     Active Substance: BUDESONIDE\FORMOTEROL FUMARATE
     Dosage: 6 DF, QD (BUDESONIDE 12 UG, FORMOTEROL FUMARATE 400 UG) (3 OF EACH TREATMENT)
     Route: 055
  2. DUOVENT [Concomitant]
     Active Substance: FENOTEROL HYDROBROMIDE
     Indication: BRONCHITIS
     Dosage: 2 ASPIRATIONS A DAY, SINCE 10 YEARS AGO
     Route: 055
  3. FORASEQ [Suspect]
     Active Substance: BUDESONIDE\FORMOTEROL FUMARATE
     Indication: CHRONIC OBSTRUCTIVE PULMONARY DISEASE
     Dosage: 2 DF, BID (BUDESONIDE 12 UG, FORMOTEROL FUMARATE 400 UG) (1 OF EACH TREATMENT)
     Route: 055

REACTIONS (4)
  - Dyspnoea [Recovering/Resolving]
  - Chronic obstructive pulmonary disease [Recovering/Resolving]
  - Malaise [Recovering/Resolving]
  - Pneumonia [Not Recovered/Not Resolved]
